FAERS Safety Report 6245346-X (Version None)
Quarter: 2009Q2

REPORT INFORMATION
  Report Type: 
  Country: None (occurrence: None)
  Receive Date: 20090625
  Receipt Date: 20090613
  Transmission Date: 20091009
  Serious: Yes (Other)
  Sender: FDA-Public Use
  Company Number: US-PFIZER INC-2008054029

PATIENT
  Sex: Female

DRUGS (15)
  1. LYRICA [Suspect]
     Indication: FIBROMYALGIA
     Dosage: 75 MG, 1X/DAY
     Route: 048
  2. CYMBALTA [Concomitant]
  3. KLONOPIN [Concomitant]
  4. ZANAFLEX [Concomitant]
  5. PLAQUENIL [Concomitant]
  6. BENADRYL [Concomitant]
  7. RELPAX [Concomitant]
  8. DIFLUCAN [Concomitant]
  9. LIDEX [Concomitant]
  10. ASTELIN [Concomitant]
  11. NASONEX [Concomitant]
  12. ADVAIR HFA [Concomitant]
  13. PROVIGIL [Concomitant]
  14. ULTRAM [Concomitant]
  15. ENBREL [Concomitant]

REACTIONS (2)
  - CONCUSSION [None]
  - FALL [None]
